FAERS Safety Report 17838732 (Version 2)
Quarter: 2020Q2

REPORT INFORMATION
  Report Type: Report from Study
  Country: US (occurrence: US)
  Receive Date: 20200528
  Receipt Date: 20200612
  Transmission Date: 20200714
  Serious: Yes (Death, Hospitalization)
  Sender: FDA-Public Use
  Company Number: US-ROCHE-2587387

PATIENT
  Age: 80 Year
  Sex: Female
  Weight: 54.4 kg

DRUGS (5)
  1. PERTUZUMAB. [Suspect]
     Active Substance: PERTUZUMAB
     Indication: BREAST CANCER
     Route: 042
     Dates: start: 20190710, end: 20200401
  2. ELIQUIS [Concomitant]
     Active Substance: APIXABAN
  3. ATEZOLIZUMAB. [Suspect]
     Active Substance: ATEZOLIZUMAB
     Indication: BREAST CANCER
     Route: 042
     Dates: start: 20190710, end: 20200401
  4. TRASTUZUMAB. [Suspect]
     Active Substance: TRASTUZUMAB
     Indication: BREAST CANCER
     Dosage: LAST DOSE ON 01/APR/2020
     Route: 042
     Dates: start: 20190710, end: 20200401
  5. PACLITAXEL. [Suspect]
     Active Substance: PACLITAXEL
     Indication: BREAST CANCER
     Dosage: LAST DOSE ON 01/APR/2020
     Route: 065
     Dates: start: 20190710, end: 20200401

REACTIONS (4)
  - Myocardial infarction [Fatal]
  - Pneumonia [Unknown]
  - Anaemia [Unknown]
  - Pulmonary embolism [Not Recovered/Not Resolved]

NARRATIVE: CASE EVENT DATE: 20200406
